FAERS Safety Report 10912113 (Version 2)
Quarter: 2015Q2

REPORT INFORMATION
  Report Type: Spontaneous
  Country: ES (occurrence: ES)
  Receive Date: 20150313
  Receipt Date: 20150410
  Transmission Date: 20150821
  Serious: Yes (Death, Other)
  Sender: FDA-Public Use
  Company Number: ES-JNJFOC-20150302207

PATIENT
  Age: 65 Year
  Sex: Female

DRUGS (1)
  1. XARELTO [Suspect]
     Active Substance: RIVAROXABAN
     Indication: THROMBOSIS PROPHYLAXIS
     Route: 048
     Dates: start: 20150223, end: 20150226

REACTIONS (7)
  - Cardiac arrest [Fatal]
  - Dyspnoea [Unknown]
  - Cardiac arrest [Recovered/Resolved]
  - Cyanosis [Unknown]
  - Cyanosis [Recovered/Resolved]
  - Pulmonary embolism [Fatal]
  - Dyspnoea [Recovered/Resolved]

NARRATIVE: CASE EVENT DATE: 20150224
